FAERS Safety Report 11346834 (Version 1)
Quarter: 2015Q3

REPORT INFORMATION
  Report Type: Spontaneous
  Country: US (occurrence: US)
  Receive Date: 20150803
  Receipt Date: 20150803
  Transmission Date: 20151125
  Serious: No
  Sender: FDA-Public Use
  Company Number: US-ELI_LILLY_AND_COMPANY-US201101002720

PATIENT
  Age: 89 Year
  Sex: Female

DRUGS (4)
  1. VITAMIN D [Concomitant]
     Active Substance: CHOLECALCIFEROL
  2. ZYPREXA [Suspect]
     Active Substance: OLANZAPINE
     Indication: AGITATION
     Dosage: 5 MG, DAILY (1/D)
  3. ATIVAN [Concomitant]
     Active Substance: LORAZEPAM
     Indication: AGITATION
  4. INSULIN [Concomitant]
     Active Substance: INSULIN NOS

REACTIONS (5)
  - Amnesia [Unknown]
  - Blood glucose increased [Unknown]
  - Off label use [Recovered/Resolved]
  - Agitation [Unknown]
  - Hallucination [Unknown]
